FAERS Safety Report 13674024 (Version 1)
Quarter: 2017Q2

REPORT INFORMATION
  Report Type: Spontaneous
  Country: IL (occurrence: IL)
  Receive Date: 20170621
  Receipt Date: 20170621
  Transmission Date: 20170830
  Serious: Yes (Other)
  Sender: FDA-Public Use
  Company Number: IL-BAYER-2017-104153

PATIENT
  Age: 39 Year
  Sex: Female

DRUGS (1)
  1. MIRENA [Suspect]
     Active Substance: LEVONORGESTREL
     Indication: MENORRHAGIA
     Dosage: 20 MCG/24HR, CONT
     Route: 015
     Dates: start: 201701

REACTIONS (14)
  - Mental impairment [None]
  - Procedural pain [Not Recovered/Not Resolved]
  - Tremor [Not Recovered/Not Resolved]
  - Acne [Not Recovered/Not Resolved]
  - Genital haemorrhage [Recovering/Resolving]
  - Vulvovaginal mycotic infection [None]
  - Depressed mood [None]
  - Fatigue [None]
  - Crying [None]
  - Irritability [None]
  - Nipple pain [Not Recovered/Not Resolved]
  - Headache [Not Recovered/Not Resolved]
  - Asthenia [None]
  - Nasal congestion [Not Recovered/Not Resolved]

NARRATIVE: CASE EVENT DATE: 2017
